FAERS Safety Report 6803420-0 (Version None)
Quarter: 2010Q2

REPORT INFORMATION
  Report Type: 
  Country: None (occurrence: None)
  Receive Date: 20100628
  Receipt Date: 20100615
  Transmission Date: 20101027
  Serious: Yes (Hospitalization)
  Sender: FDA-Public Use
  Company Number: DE-ROCHE-711401

PATIENT
  Sex: Female
  Weight: 77 kg

DRUGS (5)
  1. BEVACIZUMAB [Suspect]
     Indication: BRONCHIAL CARCINOMA
     Dosage: 4TH CYCLE
     Route: 042
     Dates: end: 20100525
  2. CARBOPLATIN [Concomitant]
     Indication: BRONCHIAL CARCINOMA
     Dosage: 4TH CYCLE, APPLICATION ON 25-MAY-2010
     Route: 042
  3. PACLITAXEL [Concomitant]
     Indication: BRONCHIAL CARCINOMA
     Dosage: 4TH CYCLE, APPLICATION ON 25-MAY-2010
     Route: 042
  4. SPIRIVA [Concomitant]
     Indication: CHRONIC OBSTRUCTIVE PULMONARY DISEASE
     Route: 055
     Dates: start: 20100301
  5. FORADIL [Concomitant]
     Indication: CHRONIC OBSTRUCTIVE PULMONARY DISEASE
     Route: 055
     Dates: start: 20100301

REACTIONS (1)
  - PNEUMOPERICARDIUM [None]
